FAERS Safety Report 7596368-8 (Version None)
Quarter: 2011Q3

REPORT INFORMATION
  Report Type: 
  Country: None (occurrence: None)
  Receive Date: 20110707
  Receipt Date: 20110628
  Transmission Date: 20111222
  Serious: Yes (Other)
  Sender: FDA-Public Use
  Company Number: US-ASTRAZENECA-2011SE38953

PATIENT
  Age: 72 Year
  Sex: Female

DRUGS (2)
  1. THYROID MEDICATION [Concomitant]
  2. ARIMIDEX [Suspect]
     Route: 048

REACTIONS (5)
  - NECK PAIN [None]
  - ROAD TRAFFIC ACCIDENT [None]
  - ALOPECIA [None]
  - ABASIA [None]
  - JOINT DISLOCATION [None]
